FAERS Safety Report 21028403 (Version 1)
Quarter: 2022Q2

REPORT INFORMATION
  Report Type: Spontaneous
  Country: US (occurrence: US)
  Receive Date: 20220630
  Receipt Date: 20220630
  Transmission Date: 20220720
  Serious: Yes (Hospitalization, Other)
  Sender: FDA-Public Use
  Company Number: US-BRISTOL-MYERS SQUIBB COMPANY-2022-061057

PATIENT
  Age: 78 Year
  Sex: Female
  Weight: 71 kg

DRUGS (1)
  1. REVLIMID [Suspect]
     Active Substance: LENALIDOMIDE
     Indication: Plasma cell myeloma
     Route: 048
     Dates: start: 20220426

REACTIONS (3)
  - Acute respiratory failure [Unknown]
  - Anaemia [Unknown]
  - Cardiac failure [Unknown]

NARRATIVE: CASE EVENT DATE: 20220513
